FAERS Safety Report 23526532 (Version 3)
Quarter: 2024Q3

REPORT INFORMATION
  Report Type: Report from Study
  Country: US (occurrence: US)
  Receive Date: 20240215
  Receipt Date: 20240907
  Transmission Date: 20241017
  Serious: Yes (Hospitalization)
  Sender: NOVARTIS
  Company Number: US-002147023-NVSC2023US267677

PATIENT
  Sex: Female

DRUGS (1)
  1. KESIMPTA [Suspect]
     Active Substance: OFATUMUMAB
     Indication: Relapsing multiple sclerosis
     Dosage: UNK
     Route: 065

REACTIONS (7)
  - Pain [Unknown]
  - Headache [Unknown]
  - Pain in extremity [Unknown]
  - Gait disturbance [Unknown]
  - Weight decreased [Unknown]
  - Nausea [Unknown]
  - Memory impairment [Unknown]
